FAERS Safety Report 10658014 (Version 2)
Quarter: 2015Q1

REPORT INFORMATION
  Report Type: Spontaneous
  Country: US (occurrence: US)
  Receive Date: 20141217
  Receipt Date: 20150123
  Transmission Date: 20150720
  Serious: No
  Sender: FDA-Public Use
  Company Number: US-ASTRAZENECA-2014SE94728

PATIENT
  Age: 26903 Day
  Sex: Female

DRUGS (1)
  1. SYMBICORT [Suspect]
     Active Substance: BUDESONIDE\FORMOTEROL FUMARATE DIHYDRATE
     Indication: CHRONIC OBSTRUCTIVE PULMONARY DISEASE
     Dosage: 160/4.5 MCG,2 PUFFS TWICE A DAY
     Route: 055
     Dates: start: 20141205

REACTIONS (4)
  - Drug dose omission [Unknown]
  - Activities of daily living impaired [Unknown]
  - Intentional product misuse [Unknown]
  - Insomnia [Unknown]

NARRATIVE: CASE EVENT DATE: 20141205
